FAERS Safety Report 23129216 (Version 1)
Quarter: 2023Q4

REPORT INFORMATION
  Report Type: Spontaneous
  Country: CN (occurrence: CN)
  Receive Date: 20231031
  Receipt Date: 20231031
  Transmission Date: 20240110
  Serious: Yes (Other)
  Sender: FDA-Public Use
  Company Number: CN-BAYER-2023A155151

PATIENT
  Age: 60 Year
  Sex: Male
  Weight: 68 kg

DRUGS (1)
  1. ULTRAVIST [Suspect]
     Active Substance: IOPROMIDE
     Indication: Angiogram
     Dosage: 76.89 G, ONCE
     Route: 042
     Dates: start: 20231018, end: 20231018

REACTIONS (11)
  - Anaphylactic shock [Recovered/Resolved]
  - Contrast media allergy [Recovered/Resolved]
  - Pruritus [Recovered/Resolved]
  - Muscle tightness [Recovered/Resolved]
  - Palpitations [Recovered/Resolved]
  - Chest discomfort [Recovered/Resolved]
  - Blood pressure decreased [Recovered/Resolved]
  - Oedema mouth [Recovered/Resolved]
  - Eyelid oedema [Recovered/Resolved]
  - Conjunctival hyperaemia [Recovered/Resolved]
  - Heart rate increased [Recovered/Resolved]

NARRATIVE: CASE EVENT DATE: 20231018
